FAERS Safety Report 13447129 (Version 1)
Quarter: 2017Q2

REPORT INFORMATION
  Report Type: Spontaneous
  Country: US (occurrence: US)
  Receive Date: 20170415
  Receipt Date: 20170415
  Transmission Date: 20170830
  Serious: Yes (Other)
  Sender: FDA-Public Use
  Company Number: None

PATIENT
  Age: 37 Year
  Sex: Female
  Weight: 64.35 kg

DRUGS (3)
  1. MOTRIN [Concomitant]
     Active Substance: IBUPROFEN
  2. PRENATAL VITAMINS [Concomitant]
     Active Substance: VITAMINS
  3. LEUPROLIDE 3 WEEK KIT [Suspect]
     Active Substance: LEUPROLIDE
     Indication: INFERTILITY
     Route: 058

REACTIONS (2)
  - Suspected counterfeit product [None]
  - Treatment failure [None]

NARRATIVE: CASE EVENT DATE: 20170201
